FAERS Safety Report 8240122-0 (Version None)
Quarter: 2012Q1

REPORT INFORMATION
  Report Type: 
  Country: None (occurrence: None)
  Receive Date: 20120328
  Receipt Date: 20120319
  Transmission Date: 20120608
  Serious: Yes (Other)
  Sender: FDA-Public Use
  Company Number: US-JNJFOC-20120213117

PATIENT
  Sex: Female
  Weight: 93.1 kg

DRUGS (3)
  1. MERCAPTOPURINE [Concomitant]
     Indication: CROHN'S DISEASE
     Route: 065
     Dates: start: 20080801, end: 20090820
  2. REMICADE [Suspect]
     Route: 042
     Dates: start: 20090307
  3. REMICADE [Suspect]
     Indication: CROHN'S DISEASE
     Route: 042
     Dates: start: 20091221

REACTIONS (5)
  - PROTEIN-LOSING GASTROENTEROPATHY [None]
  - OEDEMA PERIPHERAL [None]
  - GENERALISED OEDEMA [None]
  - DISTAL ILEAL OBSTRUCTION SYNDROME [None]
  - EOSINOPHILIA [None]
